FAERS Safety Report 23493094 (Version 2)
Quarter: 2024Q1

REPORT INFORMATION
  Report Type: Report from Study
  Country: US (occurrence: US)
  Receive Date: 20240207
  Receipt Date: 20240304
  Transmission Date: 20240410
  Serious: Yes (Hospitalization, Other)
  Sender: FDA-Public Use
  Company Number: US-ABBVIE-5530762

PATIENT
  Age: 49 Year
  Sex: Female
  Weight: 103.87 kg

DRUGS (2)
  1. RINVOQ [Suspect]
     Active Substance: UPADACITINIB
     Indication: Rheumatoid arthritis
     Route: 048
     Dates: start: 20230605
  2. RINVOQ [Suspect]
     Active Substance: UPADACITINIB
     Indication: Rheumatoid arthritis
     Route: 048
     Dates: start: 20230622

REACTIONS (4)
  - Ovarian cyst [Recovering/Resolving]
  - Adenoma benign [Unknown]
  - Myopia [Unknown]
  - Nodule [Unknown]

NARRATIVE: CASE EVENT DATE: 20240116
